FAERS Safety Report 8549663-X (Version None)
Quarter: 2012Q3

REPORT INFORMATION
  Report Type: 
  Country: None (occurrence: None)
  Receive Date: 20120730
  Receipt Date: 20120723
  Transmission Date: 20120928
  Serious: Yes (Life-Threatening)
  Sender: FDA-Public Use
  Company Number: GB-ROCHE-1093511

PATIENT
  Age: 88 Year
  Sex: Female

DRUGS (12)
  1. ADCAL [Concomitant]
     Route: 048
  2. ATORVASTATIN [Concomitant]
     Route: 048
  3. PANTOPRAZOLE [Concomitant]
     Route: 048
  4. LUCENTIS [Suspect]
     Indication: AGE-RELATED MACULAR DEGENERATION
     Route: 050
     Dates: start: 20110307
  5. NITROGLYCERIN [Concomitant]
     Route: 060
  6. METFORMIN HYDROCHLORIDE [Concomitant]
     Route: 048
  7. TICAGRELOR [Concomitant]
     Route: 048
  8. VERAPAMIL [Concomitant]
     Route: 048
  9. ASPIRIN [Concomitant]
     Route: 048
  10. ISMN [Concomitant]
     Route: 048
  11. CANDESARTAN [Concomitant]
     Route: 048
  12. LEVOTHYROXINE SODIUM [Concomitant]
     Route: 048

REACTIONS (1)
  - MYOCARDIAL INFARCTION [None]
